FAERS Safety Report 4451401-7 (Version None)
Quarter: 2004Q3

REPORT INFORMATION
  Report Type: 
  Country: None (occurrence: None)
  Receive Date: 20040916
  Receipt Date: 20021120
  Transmission Date: 20050211
  Serious: Yes (Life-Threatening)
  Sender: FDA-Public Use
  Company Number: US-ROCHE-326086

PATIENT
  Age: 3 Year
  Sex: Male
  Weight: 14 kg

DRUGS (1)
  1. FANSIDAR [Suspect]
     Indication: MALARIA
     Dosage: SINGL DOSE THERAPY.
     Route: 048
     Dates: start: 20020903, end: 20020903

REACTIONS (3)
  - APNOEA [None]
  - DRUG RESISTANCE [None]
  - HYPOGLYCAEMIC COMA [None]
